FAERS Safety Report 25923840 (Version 1)
Quarter: 2025Q4

REPORT INFORMATION
  Report Type: Spontaneous
  Country: US (occurrence: US)
  Receive Date: 20251015
  Receipt Date: 20251015
  Transmission Date: 20260118
  Serious: No
  Sender: SHIELD THERAPEUTICS
  Company Number: US-SHIELD THERAPEUTICS-US-STX-24-00246

PATIENT
  Age: 36 Year
  Sex: Female

DRUGS (4)
  1. ACCRUFER [Suspect]
     Active Substance: FERRIC MALTOL
     Indication: Blood iron decreased
     Dosage: 30 MILLIGRAM, BID
     Route: 048
     Dates: start: 20240601
  2. BUSPIRONE [Concomitant]
     Active Substance: BUSPIRONE HYDROCHLORIDE
     Dosage: UNKNOWN
     Route: 065
  3. D3 +K2 [Concomitant]
     Indication: Product used for unknown indication
     Dosage: UNKNOWN
     Route: 065
  4. VITAMIN B12 [Concomitant]
     Active Substance: CYANOCOBALAMIN
     Indication: Product used for unknown indication
     Dosage: UNKNOWN
     Route: 065

REACTIONS (2)
  - Urticaria [Recovered/Resolved]
  - Hypersensitivity [Recovered/Resolved]
